FAERS Safety Report 5524395-0 (Version None)
Quarter: 2007Q4

REPORT INFORMATION
  Report Type: 
  Country: None (occurrence: None)
  Receive Date: 20071121
  Receipt Date: 20071113
  Transmission Date: 20080405
  Serious: Yes (Hospitalization, Other)
  Sender: FDA-Public Use
  Company Number: US-PFIZER INC-2007096808

PATIENT
  Sex: Female
  Weight: 77 kg

DRUGS (6)
  1. CHANTIX [Suspect]
     Indication: SMOKING CESSATION THERAPY
  2. DRUG, UNSPECIFIED [Concomitant]
  3. PRILOSEC [Concomitant]
  4. VITAMIN CAP [Concomitant]
  5. CALCIUM WITH VITAMIN D [Concomitant]
  6. IRON [Concomitant]

REACTIONS (6)
  - ABDOMINAL PAIN [None]
  - FEELING ABNORMAL [None]
  - HYPERCHLORHYDRIA [None]
  - HYSTERECTOMY [None]
  - MUSCLE SPASMS [None]
  - PAIN IN EXTREMITY [None]
